FAERS Safety Report 7623631-4 (Version None)
Quarter: 2011Q3

REPORT INFORMATION
  Report Type: 
  Country: None (occurrence: None)
  Receive Date: 20110719
  Receipt Date: 20110719
  Transmission Date: 20111222
  Serious: Yes (Life-Threatening, Hospitalization, Disabling)
  Sender: FDA-Public Use
  Company Number: None

PATIENT
  Sex: Female
  Weight: 83.2 kg

DRUGS (1)
  1. LOESTRIN 24 FE [Suspect]
     Indication: CONTRACEPTION
     Dosage: PILL DAILY
     Dates: start: 20110301, end: 20110426

REACTIONS (2)
  - PRODUCT EXPIRATION DATE ISSUE [None]
  - HAEMORRHAGE INTRACRANIAL [None]
